FAERS Safety Report 8415290-8 (Version None)
Quarter: 2012Q2

REPORT INFORMATION
  Report Type: 
  Country: None (occurrence: None)
  Receive Date: 20120606
  Receipt Date: 20120604
  Transmission Date: 20120825
  Serious: Yes (Death, Hospitalization)
  Sender: FDA-Public Use
  Company Number: US-AMGEN-USASP2012034753

PATIENT
  Age: 54 Year
  Sex: Male

DRUGS (4)
  1. DEXAMETHASONE [Concomitant]
     Indication: HISTIOCYTOSIS HAEMATOPHAGIC
  2. ETOPOSIDE [Concomitant]
     Indication: HISTIOCYTOSIS HAEMATOPHAGIC
  3. RED BLOOD CELLS [Concomitant]
     Indication: HISTIOCYTOSIS HAEMATOPHAGIC
  4. NEUPOGEN [Suspect]
     Indication: NEUTROPENIA
     Dosage: 300 MUG, UNK
     Dates: start: 20120430

REACTIONS (4)
  - DISORIENTATION [None]
  - CARDIAC ARREST [None]
  - CONFUSIONAL STATE [None]
  - COGNITIVE DISORDER [None]
